FAERS Safety Report 8493150-4 (Version None)
Quarter: 2012Q3

REPORT INFORMATION
  Report Type: 
  Country: None (occurrence: None)
  Receive Date: 20120706
  Receipt Date: 20120627
  Transmission Date: 20120928
  Serious: Yes (Death, Hospitalization, Other)
  Sender: FDA-Public Use
  Company Number: BR-JNJFOC-20120203560

PATIENT
  Sex: Female

DRUGS (1)
  1. RISPERDAL CONSTA [Suspect]
     Indication: DEPRESSION
     Route: 030

REACTIONS (5)
  - BLOOD GLUCOSE INCREASED [None]
  - DEATH [None]
  - DEPRESSION [None]
  - BLISTER [None]
  - BLOOD PRESSURE INCREASED [None]
